FAERS Safety Report 25218270 (Version 1)
Quarter: 2025Q2

REPORT INFORMATION
  Report Type: Spontaneous
  Country: CN (occurrence: CN)
  Receive Date: 20250421
  Receipt Date: 20250421
  Transmission Date: 20250716
  Serious: Yes (Life-Threatening, Hospitalization, Other)
  Sender: BEIGENE
  Company Number: CN-BEIGENE-BGN-2025-006233

PATIENT
  Age: 55 Year
  Weight: 42 kg

DRUGS (18)
  1. TISLELIZUMAB [Suspect]
     Active Substance: TISLELIZUMAB
     Indication: Nasopharyngeal cancer metastatic
  2. TISLELIZUMAB [Suspect]
     Active Substance: TISLELIZUMAB
  3. TISLELIZUMAB [Suspect]
     Active Substance: TISLELIZUMAB
     Dosage: 200 MILLIGRAM, Q3WK, D1
     Route: 041
  4. TISLELIZUMAB [Suspect]
     Active Substance: TISLELIZUMAB
     Dosage: 200 MILLIGRAM, Q3WK, D1
  5. TISLELIZUMAB [Suspect]
     Active Substance: TISLELIZUMAB
     Dosage: 200 MILLIGRAM, Q3WK, D1
  6. TISLELIZUMAB [Suspect]
     Active Substance: TISLELIZUMAB
     Dosage: 200 MILLIGRAM, Q3WK, D1
     Route: 041
  7. GEMCITABINE HYDROCHLORIDE [Suspect]
     Active Substance: GEMCITABINE HYDROCHLORIDE
     Indication: Nasopharyngeal cancer metastatic
  8. GEMCITABINE HYDROCHLORIDE [Suspect]
     Active Substance: GEMCITABINE HYDROCHLORIDE
  9. GEMCITABINE HYDROCHLORIDE [Suspect]
     Active Substance: GEMCITABINE HYDROCHLORIDE
     Dosage: 1250 MILLIGRAM/SQ. METER (1.4 GRAM), Q3WK, D1, D8
     Route: 041
  10. GEMCITABINE HYDROCHLORIDE [Suspect]
     Active Substance: GEMCITABINE HYDROCHLORIDE
     Dosage: 1250 MILLIGRAM/SQ. METER (1.4 GRAM), Q3WK, D1, D8
  11. GEMCITABINE HYDROCHLORIDE [Suspect]
     Active Substance: GEMCITABINE HYDROCHLORIDE
     Dosage: 1250 MILLIGRAM/SQ. METER (1.4 GRAM), Q3WK, D1, D8
     Route: 041
  12. GEMCITABINE HYDROCHLORIDE [Suspect]
     Active Substance: GEMCITABINE HYDROCHLORIDE
     Dosage: 1250 MILLIGRAM/SQ. METER (1.4 GRAM), Q3WK, D1, D8
  13. SODIUM CHLORIDE [Concomitant]
     Active Substance: SODIUM CHLORIDE
     Indication: Vehicle solution use
  14. SODIUM CHLORIDE [Concomitant]
     Active Substance: SODIUM CHLORIDE
  15. SODIUM CHLORIDE [Concomitant]
     Active Substance: SODIUM CHLORIDE
     Dosage: 100 MILLILITER, Q3WK, D1
     Route: 041
  16. SODIUM CHLORIDE [Concomitant]
     Active Substance: SODIUM CHLORIDE
     Dosage: 100 MILLILITER, Q3WK, D1
  17. SODIUM CHLORIDE [Concomitant]
     Active Substance: SODIUM CHLORIDE
     Dosage: 100 MILLILITER, Q3WK, D1, D8
     Route: 041
  18. SODIUM CHLORIDE [Concomitant]
     Active Substance: SODIUM CHLORIDE
     Dosage: 100 MILLILITER, Q3WK, D1, D8

REACTIONS (3)
  - White blood cell count decreased [Recovering/Resolving]
  - Diarrhoea [Recovering/Resolving]
  - Disease progression [Unknown]
